FAERS Safety Report 4841648-X (Version None)
Quarter: 2005Q4

REPORT INFORMATION
  Report Type: 
  Country: None (occurrence: None)
  Receive Date: 20051130
  Receipt Date: 20050915
  Transmission Date: 20060501
  Serious: No
  Sender: FDA-Public Use
  Company Number: US-GLAXOSMITHKLINE-A0574411A

PATIENT
  Age: 59 Year
  Sex: Male

DRUGS (9)
  1. WELLBUTRIN XL [Suspect]
     Indication: DEPRESSION
     Route: 048
  2. PROZAC [Concomitant]
  3. ALPRAZOLAM [Concomitant]
  4. POTASSIUM [Concomitant]
  5. GLYBURIDE [Concomitant]
  6. FUROSEMIDE [Concomitant]
  7. ALBUTEROL [Concomitant]
  8. OMEPRAZOLE [Concomitant]
  9. WARFARIN [Concomitant]

REACTIONS (2)
  - DYSPNOEA [None]
  - FEELING ABNORMAL [None]
